FAERS Safety Report 9686585 (Version 1)
Quarter: 2013Q4

REPORT INFORMATION
  Report Type: Spontaneous
  Country: US (occurrence: US)
  Receive Date: 20131113
  Receipt Date: 20131113
  Transmission Date: 20140711
  Serious: Yes (Hospitalization)
  Sender: FDA-Public Use
  Company Number: US-GLAXOSMITHKLINE-A1048868A

PATIENT
  Age: 68 Year
  Sex: Female

DRUGS (5)
  1. ADVAIR [Suspect]
     Indication: DYSPNOEA
     Dosage: 1PUFF TWICE PER DAY
     Route: 065
  2. PRO-AIR [Concomitant]
  3. NASONEX [Concomitant]
  4. ALLEGRA-D [Concomitant]
  5. TORSEMIDE [Concomitant]

REACTIONS (4)
  - Skin lesion [Not Recovered/Not Resolved]
  - Bone cancer [Not Recovered/Not Resolved]
  - Lung disorder [Not Recovered/Not Resolved]
  - Internal fixation of fracture [Not Recovered/Not Resolved]
